FAERS Safety Report 5215550-8 (Version None)
Quarter: 2007Q1

REPORT INFORMATION
  Report Type: 
  Country: None (occurrence: None)
  Receive Date: 20070117
  Receipt Date: 20061206
  Transmission Date: 20070707
  Serious: Yes (Other)
  Sender: FDA-Public Use
  Company Number: 2006SP008009

PATIENT
  Age: 49 Year
  Sex: Female

DRUGS (4)
  1. DIPRODERM (BETAMETASONE DIPROPIONATE)(TOPICAL)) (BETAMETASONE DIPROPIO [Suspect]
     Indication: OTITIS EXTERNA
     Dosage: SEE IMAGE, AUR
     Route: 001
     Dates: start: 20061123, end: 20061130
  2. DIPRODERM (BETAMETASONE DIPROPIONATE)(TOPICAL)) (BETAMETASONE DIPROPIO [Suspect]
     Indication: OTITIS EXTERNA
     Dosage: SEE IMAGE, AUR
     Route: 001
     Dates: start: 20061206
  3. LOCACORTEN-VIOFORM [Concomitant]
  4. ALUMINIUMACETOTARTRAT [Concomitant]

REACTIONS (1)
  - PHARYNGEAL OEDEMA [None]
